FAERS Safety Report 4563886-6 (Version None)
Quarter: 2005Q1

REPORT INFORMATION
  Report Type: 
  Country: None (occurrence: None)
  Receive Date: 20050128
  Receipt Date: 20050120
  Transmission Date: 20050727
  Serious: Yes (Other)
  Sender: FDA-Public Use
  Company Number: PHBS2005DE01256

PATIENT
  Age: 65 Year
  Sex: Female

DRUGS (4)
  1. METOPROLOL SUCCINATE [Concomitant]
     Indication: HYPERTENSION
     Dosage: 95 MG/DAY
  2. RAMIPRIL [Suspect]
     Indication: HYPERTENSION
     Dosage: 10 MG/DAY
  3. AMISULPRIDE [Concomitant]
     Indication: SCHIZOAFFECTIVE DISORDER
     Dosage: 100 MG/DAY
  4. HYDROCHLOROTHIAZIDE [Suspect]
     Indication: HYPERTENSION
     Dosage: 12.5 MG/DAY

REACTIONS (6)
  - CHORIORETINAL SCAR [None]
  - MACULOPATHY [None]
  - RETINAL DEPIGMENTATION [None]
  - SCOTOMA [None]
  - VISUAL ACUITY REDUCED [None]
  - VISUAL DISTURBANCE [None]
